FAERS Safety Report 23986018 (Version 2)
Quarter: 2024Q4

REPORT INFORMATION
  Report Type: Report from Study
  Country: PL (occurrence: PL)
  Receive Date: 20240618
  Receipt Date: 20241205
  Transmission Date: 20250114
  Serious: Yes (Life-Threatening, Hospitalization, Other)
  Sender: GLAXOSMITHKLINE
  Company Number: PL-GSK-PL2023GSK013247

PATIENT

DRUGS (7)
  1. MEPOLIZUMAB [Suspect]
     Active Substance: MEPOLIZUMAB
     Indication: Hypereosinophilic syndrome
     Dosage: 300 MG
     Dates: start: 20221221
  2. MEPOLIZUMAB [Suspect]
     Active Substance: MEPOLIZUMAB
     Dosage: 300 MG
     Dates: start: 20230125
  3. PREDNISONE [Suspect]
     Active Substance: PREDNISONE
     Indication: Hypereosinophilic syndrome
     Dosage: 50 MG, QD
     Route: 048
     Dates: start: 20221210
  4. METHYLPREDNISOLONE [Suspect]
     Active Substance: METHYLPREDNISOLONE
     Indication: Renal failure
     Dosage: UNK
     Route: 042
     Dates: start: 2022
  5. METHYLPREDNISOLONE [Suspect]
     Active Substance: METHYLPREDNISOLONE
     Dosage: 500 MG, QD
     Route: 042
     Dates: start: 20230127, end: 20230130
  6. PREDNISOLONE [Concomitant]
     Active Substance: PREDNISOLONE
     Indication: Product used for unknown indication
     Dosage: 50 MG, QD
     Dates: start: 20221229
  7. SOLU-MEDROL [Concomitant]
     Active Substance: METHYLPREDNISOLONE SODIUM SUCCINATE
     Indication: Renal failure
     Dosage: 500 MG
     Route: 042
     Dates: start: 20230127, end: 20230131

REACTIONS (5)
  - Sepsis [Recovered/Resolved]
  - Renal failure [Recovered/Resolved with Sequelae]
  - Dermatitis exfoliative generalised [Not Recovered/Not Resolved]
  - Asthenia [Not Recovered/Not Resolved]
  - Gastrointestinal haemorrhage [Recovered/Resolved with Sequelae]

NARRATIVE: CASE EVENT DATE: 20230125
